FAERS Safety Report 7455033-8 (Version None)
Quarter: 2011Q2

REPORT INFORMATION
  Report Type: 
  Country: None (occurrence: None)
  Receive Date: 20110503
  Receipt Date: 20110405
  Transmission Date: 20111010
  Serious: Yes (Hospitalization, Other)
  Sender: FDA-Public Use
  Company Number: US-BAYER-2011-010414

PATIENT
  Age: 26 Year
  Sex: Female
  Weight: 81.633 kg

DRUGS (2)
  1. DROSPIRENONE AND ETHINYL ESTRADIOL [Suspect]
     Dosage: UNK
     Route: 048
     Dates: start: 20090116
  2. DROSPIRENONE AND ETHINYL ESTRADIOL [Suspect]
     Indication: ACNE
     Dosage: UNK
     Route: 048
     Dates: start: 20090201, end: 20090218

REACTIONS (7)
  - PAIN [None]
  - ANXIETY [None]
  - THROMBOSIS [None]
  - MENTAL DISORDER [None]
  - FEAR [None]
  - PULMONARY EMBOLISM [None]
  - EMOTIONAL DISTRESS [None]
